FAERS Safety Report 5307978-2 (Version None)
Quarter: 2007Q2

REPORT INFORMATION
  Report Type: 
  Country: None (occurrence: None)
  Receive Date: 20070426
  Receipt Date: 20070411
  Transmission Date: 20071010
  Serious: Yes (Other)
  Sender: FDA-Public Use
  Company Number: 2007GB00779

PATIENT
  Age: 53 Year
  Sex: Female

DRUGS (3)
  1. TAMOXIFEN CITRATE [Suspect]
     Route: 048
     Dates: end: 20061001
  2. PHENYTOIN [Concomitant]
     Indication: GRAND MAL CONVULSION
     Route: 048
  3. CARBAMAZEPINE [Concomitant]
     Indication: GRAND MAL CONVULSION
     Route: 048

REACTIONS (5)
  - ATONIC SEIZURES [None]
  - COORDINATION ABNORMAL [None]
  - DEPRESSED LEVEL OF CONSCIOUSNESS [None]
  - DYSPHAGIA [None]
  - MOBILITY DECREASED [None]
